FAERS Safety Report 6434861-1 (Version None)
Quarter: 2009Q4

REPORT INFORMATION
  Report Type: 
  Country: None (occurrence: None)
  Receive Date: 20091110
  Receipt Date: 20091102
  Transmission Date: 20100525
  Serious: Yes (Other)
  Sender: FDA-Public Use
  Company Number: BR-JNJFOC-20091008209

PATIENT
  Sex: Female

DRUGS (1)
  1. ORTHO EVRA [Suspect]
     Indication: CONTRACEPTION
     Dosage: ETHINYL ESTRADIOL 0.6 MG/ NORELGESTROMIN 6 MG
     Route: 062

REACTIONS (6)
  - COUGH [None]
  - DIZZINESS [None]
  - HEART RATE IRREGULAR [None]
  - PAIN IN EXTREMITY [None]
  - RESPIRATION ABNORMAL [None]
  - VISION BLURRED [None]
